FAERS Safety Report 7745171-4 (Version None)
Quarter: 2011Q3

REPORT INFORMATION
  Report Type: 
  Country: None (occurrence: None)
  Receive Date: 20110907
  Receipt Date: 20110824
  Transmission Date: 20111222
  Serious: Yes (Hospitalization, Other)
  Sender: FDA-Public Use
  Company Number: 1000022931

PATIENT
  Age: 81 Year
  Sex: Male

DRUGS (6)
  1. GASTER (OMEPRAZOLE) (OMEPRAZOLE) [Concomitant]
  2. MEMANTINE [Suspect]
     Indication: DEMENTIA ALZHEIMER'S TYPE
     Dosage: 15 MG (15 MG, 1 IN 1 D), ORAL
     Route: 048
     Dates: start: 20110719, end: 20110726
  3. PREMINENT (LOSARTAN POTASSIUM, HYDROCHLOROTHIAZIDE) (LOSARTAN POTASSIU [Concomitant]
  4. MEMANTINE [Suspect]
     Indication: DEMENTIA ALZHEIMER'S TYPE
     Dosage: 5 MG (5 MG, 1 IN 1 D), ORAL
     Route: 048
     Dates: start: 20110614, end: 20110621
  5. AMLODIN (AMLODIPINE BESILATE) (AMLODIPINE BESILATE) [Concomitant]
  6. DOGMATYL (SULPIRIDE) (SULPIRIDE) [Concomitant]

REACTIONS (4)
  - SOMNOLENCE [None]
  - EXERCISE TOLERANCE DECREASED [None]
  - DEHYDRATION [None]
  - RHABDOMYOLYSIS [None]
